FAERS Safety Report 8965005 (Version 1)
Quarter: 2012Q4

REPORT INFORMATION
  Report Type: 
  Country: CA (occurrence: CA)
  Receive Date: 20121214
  Receipt Date: 20121214
  Transmission Date: 20130627
  Serious: Yes (Other)
  Sender: FDA-Public Use
  Company Number: CA-ASTRAZENECA-2012SE90289

PATIENT
  Age: 73 Year
  Sex: Female

DRUGS (3)
  1. CRESTOR [Suspect]
     Route: 048
     Dates: start: 20060622, end: 20121108
  2. CALCIUM/VITAMIN D [Concomitant]
     Dosage: 600 MG/400 IU DAILY
  3. SENIOR MULTIVITAMINS [Concomitant]
     Dosage: UNKNOWN DOSE DAILY

REACTIONS (1)
  - Macular oedema [Recovering/Resolving]
